FAERS Safety Report 24965906 (Version 2)
Quarter: 2025Q1

REPORT INFORMATION
  Report Type: Spontaneous
  Country: IT (occurrence: IT)
  Receive Date: 20250213
  Receipt Date: 20250228
  Transmission Date: 20250409
  Serious: Yes (Other)
  Sender: MYLAN
  Company Number: IT-ROCHE-10000194872

PATIENT
  Age: 28 Year
  Sex: Female

DRUGS (10)
  1. PREDNISONE [Suspect]
     Active Substance: PREDNISONE
     Indication: Diffuse large B-cell lymphoma stage IV
  2. DOXORUBICIN [Suspect]
     Active Substance: DOXORUBICIN
     Indication: Diffuse large B-cell lymphoma stage IV
  3. RITUXIMAB [Suspect]
     Active Substance: RITUXIMAB
     Indication: Diffuse large B-cell lymphoma stage IV
  4. CYCLOPHOSPHAMIDE [Suspect]
     Active Substance: CYCLOPHOSPHAMIDE
     Indication: Diffuse large B-cell lymphoma stage IV
  5. VINCRISTINE [Suspect]
     Active Substance: VINCRISTINE
     Indication: Diffuse large B-cell lymphoma stage IV
  6. TOCILIZUMAB [Concomitant]
     Active Substance: TOCILIZUMAB
  7. METHOTREXATE [Concomitant]
     Active Substance: METHOTREXATE
  8. CARBOPLATIN [Concomitant]
     Active Substance: CARBOPLATIN
  9. CYTARABINE [Concomitant]
     Active Substance: CYTARABINE
  10. CYTARABINE [Concomitant]
     Active Substance: CYTARABINE

REACTIONS (1)
  - Cytopenia [Recovered/Resolved]
